FAERS Safety Report 10173782 (Version 2)
Quarter: 2014Q3

REPORT INFORMATION
  Report Type: Report from Study
  Country: US (occurrence: US)
  Receive Date: 20140515
  Receipt Date: 20140813
  Transmission Date: 20150326
  Serious: Yes (Hospitalization)
  Sender: FDA-Public Use
  Company Number: US-ELI_LILLY_AND_COMPANY-US201405003164

PATIENT
  Sex: Female

DRUGS (11)
  1. QUINIDINE [Concomitant]
     Active Substance: QUINIDINE
  2. SILOSTAR [Concomitant]
     Active Substance: NEBIVOLOL
  3. LEVOTHYROXINE [Concomitant]
     Active Substance: LEVOTHYROXINE
     Dosage: UNK
  4. HUMALOG [Concomitant]
     Active Substance: INSULIN LISPRO
  5. LANTUS [Concomitant]
     Active Substance: INSULIN GLARGINE
  6. LIVALO [Concomitant]
     Active Substance: PITAVASTATIN CALCIUM
  7. NITROSPRAY [Concomitant]
  8. PRASUGREL HYDROCHLORIDE [Suspect]
     Active Substance: PRASUGREL HYDROCHLORIDE
     Indication: STENT PLACEMENT
     Dosage: 10 MG, QD
     Route: 048
     Dates: start: 2010, end: 201403
  9. PRASUGREL HYDROCHLORIDE [Suspect]
     Active Substance: PRASUGREL HYDROCHLORIDE
     Dosage: 10 MG, QD
     Route: 048
     Dates: start: 201403
  10. ISOSORBIDE [Concomitant]
     Active Substance: ISOSORBIDE
  11. OXYGEN. [Concomitant]
     Active Substance: OXYGEN

REACTIONS (10)
  - Pulmonary oedema [Recovered/Resolved]
  - Diarrhoea [Unknown]
  - Asthenia [Unknown]
  - Cardiac failure congestive [Unknown]
  - Myalgia [Unknown]
  - Sleep disorder [Recovered/Resolved]
  - Cardiovascular disorder [Unknown]
  - Myocardial infarction [Unknown]
  - Gastric disorder [Recovered/Resolved]
  - Angina pectoris [Recovered/Resolved]
